FAERS Safety Report 4287443-4 (Version None)
Quarter: 2004Q1

REPORT INFORMATION
  Report Type: 
  Country: None (occurrence: None)
  Receive Date: 20040205
  Receipt Date: 20040126
  Transmission Date: 20041129
  Serious: Yes (Other)
  Sender: FDA-Public Use
  Company Number: 2004005685

PATIENT
  Age: 62 Year
  Sex: Female
  Weight: 97.5234 kg

DRUGS (14)
  1. GLUCOTROL XL [Suspect]
     Indication: DIABETES MELLITUS
     Dosage: 5 MG (DAILY), ORAL
     Route: 048
  2. DILTIAZEM HYDROCHLORIDE [Concomitant]
  3. PRINZIDE [Concomitant]
  4. FUROSEMIDE [Concomitant]
  5. POTASSIUM (POTASSIUM) [Concomitant]
  6. SIMVASTATIN [Concomitant]
  7. METOPROLOL SUCCINATE [Concomitant]
  8. TRAZODONE HCL [Concomitant]
  9. ESCITALOPRAM (ESCITALOPRAM) [Concomitant]
  10. SERETIDE MITE (FLUTICASONE PROPIONATE, SALMETEROL XINAFOATE) [Concomitant]
  11. RALOXIFENE HYDROCHLORIDE (RALOXIFENE HYDROCHLORIDE) [Concomitant]
  12. ALENDRONATE SODIUM [Concomitant]
  13. BUDESONIDE (BUDESONIDE) [Concomitant]
  14. PREDNISOLONE ACETATE [Concomitant]

REACTIONS (2)
  - BLOOD GLUCOSE INCREASED [None]
  - EYE DISORDER [None]
